FAERS Safety Report 4494444-X (Version None)
Quarter: 2004Q4

REPORT INFORMATION
  Report Type: 
  Country: None (occurrence: None)
  Receive Date: 20041102
  Receipt Date: 20041018
  Transmission Date: 20050328
  Serious: Yes (Death)
  Sender: FDA-Public Use
  Company Number: FR_040904855

PATIENT
  Age: 50 Year
  Sex: Female
  Weight: 80 kg

DRUGS (3)
  1. PROZAC [Suspect]
     Dosage: 20 MG DAY
     Dates: start: 19950101
  2. ORAP [Concomitant]
  3. LITHIUM CARBONATE [Concomitant]

REACTIONS (2)
  - DRUG LEVEL BELOW THERAPEUTIC [None]
  - SCHIZOPHRENIA [None]
